FAERS Safety Report 4875715-1 (Version None)
Quarter: 2006Q1

REPORT INFORMATION
  Report Type: 
  Country: None (occurrence: None)
  Receive Date: 20060105
  Receipt Date: 20051010
  Transmission Date: 20060701
  Serious: Yes (Death)
  Sender: FDA-Public Use
  Company Number: OMPQ-NO-0510S-1339

PATIENT
  Age: 50 Year
  Sex: Male

DRUGS (1)
  1. OMNIPAQUE 140 [Suspect]
     Indication: OSTEOLYSIS
     Dosage: 50 ML, SINGLE DOSE, I.V.
     Route: 042
     Dates: start: 20051005, end: 20051005

REACTIONS (10)
  - CARDIAC ARREST [None]
  - CEREBRAL ARTERY EMBOLISM [None]
  - CORONARY ARTERY EMBOLISM [None]
  - LOSS OF CONSCIOUSNESS [None]
  - POST PROCEDURAL COMPLICATION [None]
  - PULMONARY VASCULAR DISORDER [None]
  - RESPIRATORY ARREST [None]
  - RESPIRATORY FAILURE [None]
  - SHOCK [None]
  - TUMOUR EMBOLISM [None]
